FAERS Safety Report 9741322 (Version 2)
Quarter: 2013Q4

REPORT INFORMATION
  Report Type: Spontaneous
  Country: IN (occurrence: IN)
  Receive Date: 20131209
  Receipt Date: 20131223
  Transmission Date: 20140711
  Serious: Yes (Hospitalization)
  Sender: FDA-Public Use
  Company Number: IN-BAXTER-2013BAX048432

PATIENT
  Age: 58 Year
  Sex: 0

DRUGS (1)
  1. DIANEAL PD-2 PERITONEAL DIALISIS SOLUTION ULTRABAG WITH 2.5% DEXTROSE [Suspect]
     Indication: PERITONEAL DIALYSIS
     Route: 033

REACTIONS (2)
  - Peritonitis [Recovered/Resolved]
  - Peritoneal dialysis complication [Unknown]
